FAERS Safety Report 10378279 (Version 2)
Quarter: 2014Q4

REPORT INFORMATION
  Report Type: Spontaneous
  Country: US (occurrence: US)
  Receive Date: 20140812
  Receipt Date: 20141014
  Transmission Date: 20150528
  Serious: No
  Sender: FDA-Public Use
  Company Number: US-PFIZER INC-2014221759

PATIENT
  Age: 75 Year
  Sex: Female
  Weight: 95.7 kg

DRUGS (5)
  1. MECLIZINE [Concomitant]
     Active Substance: MECLIZINE\MECLIZINE HYDROCHLORIDE
     Indication: MENIERE^S DISEASE
     Dosage: 12.5 MG, 2X/DAY
  2. POTASSIUM [Concomitant]
     Active Substance: POTASSIUM
     Dosage: 10 MEQ, DAILY
  3. FUROSEMIDE. [Suspect]
     Active Substance: FUROSEMIDE
     Dosage: UNK
  4. TIKOSYN [Suspect]
     Active Substance: DOFETILIDE
     Indication: ATRIAL FIBRILLATION
     Dosage: 500 UG, TWICE A DAY
     Route: 048
     Dates: start: 201206, end: 201306
  5. WARFARIN [Concomitant]
     Active Substance: WARFARIN
     Dosage: 25 MG, WEEKLY (5MGX5, EXCEPT ON MONDAY AND FRIDAY)

REACTIONS (2)
  - Abdominal pain [Recovered/Resolved]
  - Diarrhoea [Recovered/Resolved]

NARRATIVE: CASE EVENT DATE: 201306
